FAERS Safety Report 23513893 (Version 1)
Quarter: 2024Q1

REPORT INFORMATION
  Report Type: Spontaneous
  Country: US (occurrence: None)
  Receive Date: 20240212
  Receipt Date: 20240212
  Transmission Date: 20240410
  Serious: Yes (Hospitalization)
  Sender: FDA-Public Use
  Company Number: None

PATIENT
  Sex: Female

DRUGS (1)
  1. ONUREG [Suspect]
     Active Substance: AZACITIDINE
     Indication: Acute myeloid leukaemia
     Dosage: 300M MG ORAL??FREQUENCY: ONCE DAILY FOR 14 DAYS THEN 14 DAYS OFF???
     Route: 048
     Dates: start: 202303

REACTIONS (1)
  - Hospitalisation [None]
